FAERS Safety Report 9362972 (Version 1)
Quarter: 2013Q2

REPORT INFORMATION
  Report Type: Spontaneous
  Country: US (occurrence: US)
  Receive Date: 20130624
  Receipt Date: 20130624
  Transmission Date: 20140414
  Serious: No
  Sender: FDA-Public Use
  Company Number: US-009507513-1306USA010129

PATIENT
  Age: 20 Year
  Sex: Female
  Weight: 66.3 kg

DRUGS (1)
  1. NEXPLANON [Suspect]
     Indication: CONTRACEPTION
     Dosage: UNK
     Route: 059
     Dates: start: 20130619

REACTIONS (2)
  - Contusion [Not Recovered/Not Resolved]
  - Device difficult to use [Not Recovered/Not Resolved]
